FAERS Safety Report 22061864 (Version 11)
Quarter: 2023Q4

REPORT INFORMATION
  Report Type: Spontaneous
  Country: CA (occurrence: CA)
  Receive Date: 20230304
  Receipt Date: 20231115
  Transmission Date: 20240109
  Serious: Yes (Hospitalization, Disabling, Other)
  Sender: FDA-Public Use
  Company Number: CA-CELLTRION INC.-2023CA004814

PATIENT

DRUGS (11)
  1. INFLECTRA [Suspect]
     Active Substance: INFLIXIMAB-DYYB
     Indication: Colitis ulcerative
     Dosage: 5 MG/KG, W 0, 2, 6 WEEKS THEN EVERY 8 WEEKS
     Route: 042
     Dates: start: 20221116
  2. INFLECTRA [Suspect]
     Active Substance: INFLIXIMAB-DYYB
     Dosage: 5 MG/KG (400 MG), EVERY 8 WEEKS
     Route: 042
     Dates: start: 20230223
  3. INFLECTRA [Suspect]
     Active Substance: INFLIXIMAB-DYYB
     Dosage: 5 MG/KG, W 0, 2, 6 WEEKS THEN EVERY 8 WEEKS
     Route: 042
     Dates: start: 20230614
  4. INFLECTRA [Suspect]
     Active Substance: INFLIXIMAB-DYYB
     Dosage: 5 MG/KG (385 MG), W 0, 2, 6 WEEKS THEN EVERY 8 WEEKS
     Route: 042
     Dates: start: 20230809
  5. INFLECTRA [Suspect]
     Active Substance: INFLIXIMAB-DYYB
     Dosage: 10 MG/KG (780 MG), EVERY 2 WEEKS X 2 DOSES + THEN EVERY 4 WEEKS THEREAFTER (EVERY 4 WEEKS + 2 DAYS)
     Route: 042
     Dates: start: 20230908
  6. INFLECTRA [Suspect]
     Active Substance: INFLIXIMAB-DYYB
     Dosage: 10 MG/KG, AFTER 1 WEEK AND 5 DAYS
     Route: 042
     Dates: start: 20230920
  7. INFLECTRA [Suspect]
     Active Substance: INFLIXIMAB-DYYB
     Dosage: 10 MG/KG (765 MG), EVERY 2 WEEKS X 2 DOSES AND THEN EVERY 4 WEEKS THEREAFTER (EVERY 2 WEEKS)
     Route: 042
     Dates: start: 20231004
  8. INFLECTRA [Suspect]
     Active Substance: INFLIXIMAB-DYYB
     Dosage: 10 MG/KG (760 MG), EVERY 2 WEEKS X 2 DOSES AND THEN EVERY 4 WEEKS THEREAFTER (EVERY 4 WEEKS)
     Route: 042
     Dates: start: 20231101, end: 20231101
  9. BUDESONIDE [Concomitant]
     Active Substance: BUDESONIDE
     Dosage: 1 DF
  10. MESALAMINE [Concomitant]
     Active Substance: MESALAMINE
     Dosage: 1 DF
  11. PREDNISONE [Concomitant]
     Active Substance: PREDNISONE
     Dosage: 1 DF

REACTIONS (16)
  - Haemorrhage [Not Recovered/Not Resolved]
  - Small cell lung cancer [Unknown]
  - Haemorrhage [Unknown]
  - Condition aggravated [Not Recovered/Not Resolved]
  - Spinal fracture [Not Recovered/Not Resolved]
  - Drug ineffective [Unknown]
  - Drug level decreased [Unknown]
  - Joint swelling [Unknown]
  - Rectal tenesmus [Unknown]
  - Dyspnoea [Unknown]
  - Haemoglobin decreased [Unknown]
  - Pain [Unknown]
  - Migraine [Recovered/Resolved]
  - Osteoporosis [Not Recovered/Not Resolved]
  - Coronavirus infection [Recovered/Resolved]
  - Off label use [Unknown]

NARRATIVE: CASE EVENT DATE: 20221101
